FAERS Safety Report 16406727 (Version 2)
Quarter: 2019Q2

REPORT INFORMATION
  Report Type: Spontaneous
  Country: IN (occurrence: IN)
  Receive Date: 20190607
  Receipt Date: 20190614
  Transmission Date: 20190711
  Serious: Yes (Hospitalization)
  Sender: FDA-Public Use
  Company Number: PHHY2019IN131769

PATIENT
  Age: 63 Year
  Sex: Male

DRUGS (1)
  1. METFORMIN [Suspect]
     Active Substance: METFORMIN HYDROCHLORIDE
     Indication: DIABETES MELLITUS
     Dosage: UNK
     Route: 065

REACTIONS (11)
  - Speech disorder [Recovering/Resolving]
  - Fatigue [Recovering/Resolving]
  - Encephalopathy [Recovering/Resolving]
  - Bradykinesia [Recovering/Resolving]
  - Muscle rigidity [Recovering/Resolving]
  - Somnolence [Recovering/Resolving]
  - Gait disturbance [Recovering/Resolving]
  - Asthenia [Recovering/Resolving]
  - Depressed level of consciousness [Recovering/Resolving]
  - Muscular weakness [Recovering/Resolving]
  - Asterixis [Recovering/Resolving]
